FAERS Safety Report 10267355 (Version 2)
Quarter: 2014Q2

REPORT INFORMATION
  Report Type: Report from Study
  Country: IN (occurrence: IN)
  Receive Date: 20140630
  Receipt Date: 20140630
  Transmission Date: 20141212
  Serious: Yes (Death)
  Sender: FDA-Public Use
  Company Number: PHHY2012IN026206

PATIENT
  Age: 39 Year
  Sex: Female

DRUGS (3)
  1. GLIVEC [Suspect]
     Indication: CHRONIC MYELOID LEUKAEMIA
     Dosage: 300 MG, UNK
     Route: 048
  2. GLIVEC [Suspect]
     Dosage: 400 MG, UNK
     Route: 048
  3. GLIVEC [Suspect]
     Dosage: 800 MG, UNK

REACTIONS (2)
  - Death [Fatal]
  - White blood cell count increased [Unknown]
